FAERS Safety Report 10215758 (Version 1)
Quarter: 2014Q2

REPORT INFORMATION
  Report Type: Spontaneous
  Country: US (occurrence: None)
  Receive Date: 20140603
  Receipt Date: 20140603
  Transmission Date: 20141212
  Serious: Yes (Hospitalization, Other)
  Sender: FDA-Public Use
  Company Number: None

PATIENT
  Age: 63 Year
  Sex: Male

DRUGS (2)
  1. SOVALDI [Suspect]
     Indication: HEPATITIS C
     Route: 048
     Dates: start: 20140514
  2. RIBASPHERE RIBAPAK [Suspect]
     Indication: HEPATITIS C
     Route: 048
     Dates: start: 20140514

REACTIONS (6)
  - Agitation [None]
  - Irritability [None]
  - Incoherent [None]
  - Unresponsive to stimuli [None]
  - Ammonia increased [None]
  - Ascites [None]
